FAERS Safety Report 19652868 (Version 1)
Quarter: 2021Q3

REPORT INFORMATION
  Report Type: Spontaneous
  Country: FR (occurrence: FR)
  Receive Date: 20210803
  Receipt Date: 20210803
  Transmission Date: 20211014
  Serious: Yes (Hospitalization)
  Sender: FDA-Public Use
  Company Number: FR-MYLANLABS-2021M1047384

PATIENT
  Age: 83 Year
  Sex: Male

DRUGS (13)
  1. CIPROFLOXACINE ARROW [Interacting]
     Active Substance: CIPROFLOXACIN
     Indication: BACTERIAL COLITIS
     Dosage: 1000 MILLIGRAM, QD
     Route: 048
     Dates: start: 20210125, end: 20210125
  2. SERESTA [Concomitant]
     Active Substance: OXAZEPAM
     Indication: ANXIETY
     Dosage: 10 MILLIGRAM, QD (0?0?1)
     Route: 048
     Dates: start: 20170301
  3. LIPANTHYL [Concomitant]
     Active Substance: FENOFIBRATE
     Indication: DYSLIPIDAEMIA
     Dosage: 145 MILLIGRAM, QD
     Route: 048
     Dates: start: 20170301
  4. METFORMINE                         /00082701/ [Concomitant]
     Active Substance: METFORMIN HYDROCHLORIDE
     Indication: TYPE 2 DIABETES MELLITUS
     Dosage: 1000 MILLIGRAM, QD (1?0?1)
     Route: 048
     Dates: start: 20170301
  5. INIPOMP [Concomitant]
     Active Substance: PANTOPRAZOLE SODIUM
     Indication: GASTRIC ULCER
     Dosage: 20 MILLIGRAM, QD
     Route: 048
     Dates: start: 20170301
  6. AZITHROMYCINE SANDOZ               /00944301/ [Interacting]
     Active Substance: AZITHROMYCIN
     Indication: BACTERIAL COLITIS
     Dosage: 250 MILLIGRAM, QD
     Route: 048
     Dates: start: 20210125, end: 20210127
  7. AZITHROMYCINE SANDOZ               /00944301/ [Interacting]
     Active Substance: AZITHROMYCIN
     Dosage: 250 MILLIGRAM, QD
     Route: 048
     Dates: start: 20210130, end: 20210201
  8. PREVISCAN                          /00789001/ [Concomitant]
     Active Substance: FLUINDIONE
     Indication: THROMBOSIS PROPHYLAXIS
     Dosage: 10 MILLIGRAM, QD (0?0?1/2)
     Route: 048
     Dates: start: 20170301
  9. KARDEGIC [Concomitant]
     Active Substance: ASPIRIN DL-LYSINE
     Indication: CEREBROVASCULAR ACCIDENT PROPHYLAXIS
     Dosage: 75 MILLIGRAM, QD
     Route: 048
     Dates: start: 20180501
  10. ESIDREX [Concomitant]
     Active Substance: HYDROCHLOROTHIAZIDE
     Indication: HYPERTENSION
     Dosage: 25 MILLIGRAM, QD (1?0?0)
     Route: 048
     Dates: start: 20180501, end: 20210126
  11. ATORVASTATIN [Suspect]
     Active Substance: ATORVASTATIN
     Indication: DYSLIPIDAEMIA
     Dosage: 0?0?1
     Route: 048
     Dates: start: 201703
  12. ZOLOFT [Concomitant]
     Active Substance: SERTRALINE HYDROCHLORIDE
     Indication: DEPRESSION
     Dosage: 50 MILLIGRAM, QD (1?0?0)
     Route: 048
     Dates: start: 20170301
  13. RYTHMODAN                          /00271801/ [Concomitant]
     Active Substance: DISOPYRAMIDE
     Indication: HYPERTENSION
     Dosage: 500 MILLIGRAM, QD (1?0?1)
     Route: 048
     Dates: start: 20170301

REACTIONS (2)
  - Pancreatitis acute [Recovered/Resolved]
  - Drug interaction [Unknown]

NARRATIVE: CASE EVENT DATE: 20210130
